FAERS Safety Report 25813636 (Version 1)
Quarter: 2025Q3

REPORT INFORMATION
  Report Type: Spontaneous
  Country: EU (occurrence: EU)
  Receive Date: 20250917
  Receipt Date: 20250917
  Transmission Date: 20251020
  Serious: Yes (Death, Other)
  Sender: AMGEN
  Company Number: EU-AMGEN-FRASP2025181706

PATIENT

DRUGS (1)
  1. BEVACIZUMAB [Suspect]
     Active Substance: BEVACIZUMAB
     Indication: Lung adenocarcinoma
     Route: 065

REACTIONS (5)
  - Death [Fatal]
  - Lung adenocarcinoma [Unknown]
  - Drug effective for unapproved indication [Unknown]
  - Toxicity to various agents [Unknown]
  - Off label use [Unknown]
